FAERS Safety Report 5980624-0 (Version None)
Quarter: 2008Q4

REPORT INFORMATION
  Report Type: 
  Country: None (occurrence: None)
  Receive Date: 20081202
  Receipt Date: 20081202
  Transmission Date: 20090506
  Serious: Yes (Disabling)
  Sender: FDA-Public Use
  Company Number: None

PATIENT
  Age: 32 Year
  Sex: Female
  Weight: 58.514 kg

DRUGS (2)
  1. CREST PRO-HEALTH RINSE PROCTOR + GAMBLE [Suspect]
     Indication: DENTAL CARIES
     Dosage: 1/2 CAPFUL TWICE DAILY DENTAL
     Route: 004
     Dates: start: 20080701, end: 20081201
  2. CREST PRO-HEALTH RINSE PROCTOR + GAMBLE [Suspect]
     Indication: DENTAL DISORDER PROPHYLAXIS
     Dosage: 1/2 CAPFUL TWICE DAILY DENTAL
     Route: 004
     Dates: start: 20080701, end: 20081201

REACTIONS (3)
  - AGEUSIA [None]
  - HYPOAESTHESIA ORAL [None]
  - TOOTH DISCOLOURATION [None]
